FAERS Safety Report 24393687 (Version 2)
Quarter: 2024Q4

REPORT INFORMATION
  Report Type: Spontaneous
  Country: CO (occurrence: CO)
  Receive Date: 20241003
  Receipt Date: 20241008
  Transmission Date: 20250115
  Serious: No
  Sender: NOVARTIS
  Company Number: CO-002147023-NVSC2024CO194602

PATIENT
  Age: 4 Decade
  Sex: Male

DRUGS (6)
  1. ARTEMETHER\LUMEFANTRINE [Suspect]
     Active Substance: ARTEMETHER\LUMEFANTRINE
     Indication: Malaria
     Dosage: UNK
     Route: 065
  2. ARTEMETHER\LUMEFANTRINE [Suspect]
     Active Substance: ARTEMETHER\LUMEFANTRINE
     Indication: Plasmodium vivax infection
  3. PRIMAQUINE [Suspect]
     Active Substance: PRIMAQUINE
     Indication: Malaria
     Dosage: 20 MG, QD
     Route: 065
  4. PRIMAQUINE [Suspect]
     Active Substance: PRIMAQUINE
     Indication: Plasmodium vivax infection
  5. ARTESUNATE [Suspect]
     Active Substance: ARTESUNATE
     Indication: Malaria
     Dosage: 180 MG IN HOUR 0,  HOUR 12 AND HOUR 24
     Route: 042
  6. ARTESUNATE [Suspect]
     Active Substance: ARTESUNATE
     Indication: Plasmodium vivax infection

REACTIONS (2)
  - Therapy non-responder [Unknown]
  - Product use in unapproved indication [Unknown]
